FAERS Safety Report 8536420 (Version 3)
Quarter: 2012Q4

REPORT INFORMATION
  Report Type: 
  Country: US (occurrence: US)
  Receive Date: 20120430
  Receipt Date: 20121017
  Transmission Date: 20130627
  Serious: Yes (Hospitalization)
  Sender: FDA-Public Use
  Company Number: US-GLAXOSMITHKLINE-A0914636A

PATIENT
  Age: 73 Year
  Sex: Male
  Weight: 116.8 kg

DRUGS (5)
  1. AVANDIA [Suspect]
     Indication: DIABETES MELLITUS
     Dosage: 8MG Per day
     Route: 048
     Dates: start: 200301, end: 200703
  2. PAXIL [Concomitant]
  3. MONOPRIL [Concomitant]
  4. TENORMIN [Concomitant]
  5. GLUCOTROL [Concomitant]

REACTIONS (3)
  - Myocardial infarction [Recovering/Resolving]
  - Cardiac failure congestive [Unknown]
  - Coronary artery disease [Unknown]
